FAERS Safety Report 19386352 (Version 1)
Quarter: 2021Q2

REPORT INFORMATION
  Report Type: Spontaneous
  Country: US (occurrence: US)
  Receive Date: 20210607
  Receipt Date: 20210607
  Transmission Date: 20210717
  Serious: Yes (Other)
  Sender: FDA-Public Use
  Company Number: US-PFIZER INC-2021267158

PATIENT
  Age: 9 Decade
  Sex: Female

DRUGS (1)
  1. DOFETILIDE. [Suspect]
     Active Substance: DOFETILIDE
     Dosage: UNK

REACTIONS (5)
  - Loss of consciousness [Unknown]
  - Syncope [Unknown]
  - Injury [Unknown]
  - Drug ineffective [Unknown]
  - Cerebrovascular accident [Unknown]
